FAERS Safety Report 5959149-4 (Version None)
Quarter: 2008Q4

REPORT INFORMATION
  Report Type: 
  Country: None (occurrence: None)
  Receive Date: 20081120
  Receipt Date: 20080312
  Transmission Date: 20090506
  Serious: No
  Sender: FDA-Public Use
  Company Number: A0715001A

PATIENT
  Age: 54 Year
  Sex: Male

DRUGS (2)
  1. BUPROPION HYDROCHLORIDE [Suspect]
     Indication: DEPRESSION
     Route: 048
     Dates: start: 20030301
  2. ESKALITH CR [Concomitant]

REACTIONS (1)
  - RAPID EYE MOVEMENTS SLEEP ABNORMAL [None]
